FAERS Safety Report 7311386-2 (Version None)
Quarter: 2011Q1

REPORT INFORMATION
  Report Type: 
  Country: None (occurrence: None)
  Receive Date: 20110224
  Receipt Date: 20110217
  Transmission Date: 20110831
  Serious: Yes (Other)
  Sender: FDA-Public Use
  Company Number: US-PFIZER INC-2010059462

PATIENT
  Sex: Female
  Weight: 55.3 kg

DRUGS (13)
  1. GABAPENTIN [Concomitant]
     Indication: AFFECTIVE DISORDER
     Dosage: 300 MG, 1X/DAY
     Route: 048
  2. SUTENT [Suspect]
     Indication: RENAL CANCER
     Dosage: 25 MG, 1X/DAY
     Route: 048
     Dates: start: 20061113
  3. OXYCODONE [Concomitant]
     Indication: BACK PAIN
     Dosage: 5 MG, AS NEEDED
  4. QUINAPRIL [Concomitant]
     Indication: HYPERTENSION
     Dosage: 10 MG, 1X/DAY
     Route: 048
  5. ESTRADIOL [Concomitant]
     Indication: HOT FLUSH
     Dosage: 0.5 MG, UNK
  6. LUMIGAN [Concomitant]
     Indication: GLAUCOMA
     Dosage: UNK
     Route: 047
  7. HYDROCHLOROTHIAZIDE [Concomitant]
     Indication: HYPERTENSION
     Dosage: 25 MG, 1X/DAY
     Route: 048
  8. SYNTHROID [Concomitant]
     Indication: THYROID DISORDER
     Dosage: 0.05 UG, UNK
     Route: 048
  9. SIMVASTATIN [Concomitant]
     Indication: BLOOD CHOLESTEROL INCREASED
     Dosage: 40 MG, 1X/DAY
     Route: 048
  10. VENLAFAXINE [Concomitant]
     Indication: DEPRESSION
     Dosage: 150 MG, UNK
  11. OMEPRAZOLE [Concomitant]
     Indication: GASTROOESOPHAGEAL REFLUX DISEASE
     Dosage: 40 MG, 2X/DAY
  12. FENTANYL [Concomitant]
     Indication: BACK PAIN
     Dosage: 75 MG, UNK
  13. DIAZEPAM [Concomitant]
     Indication: ANXIETY DISORDER
     Dosage: 5 MG, 1X/DAY

REACTIONS (5)
  - DIARRHOEA [None]
  - SYNCOPE [None]
  - HYPOTENSION [None]
  - NERVOUSNESS [None]
  - DEHYDRATION [None]
